FAERS Safety Report 8307654-8 (Version None)
Quarter: 2012Q2

REPORT INFORMATION
  Report Type: 
  Country: None (occurrence: None)
  Receive Date: 20120424
  Receipt Date: 20120413
  Transmission Date: 20120825
  Serious: Yes (Hospitalization)
  Sender: FDA-Public Use
  Company Number: NL-MEDIMMUNE-MEDI-0014162

PATIENT
  Sex: Male
  Weight: 9.63 kg

DRUGS (5)
  1. SYNAGIS [Suspect]
     Route: 042
     Dates: start: 20111010, end: 20120413
  2. ACETYLSALICYLATE CALCIUM [Concomitant]
  3. ERYTHROMYCIN LACTOBIONATE [Concomitant]
  4. ESOMEPRAZOLE SODIUM [Concomitant]
  5. SYNAGIS [Suspect]
     Route: 030
     Dates: start: 20110912, end: 20110912

REACTIONS (3)
  - NASOPHARYNGITIS [None]
  - DIARRHOEA [None]
  - VOMITING [None]
